FAERS Safety Report 9417217 (Version 1)
Quarter: 2013Q3

REPORT INFORMATION
  Report Type: Spontaneous
  Country: US (occurrence: None)
  Receive Date: 20130722
  Receipt Date: 20130722
  Transmission Date: 20140515
  Serious: Yes (Death)
  Sender: FDA-Public Use
  Company Number: None

PATIENT
  Age: 58 Year
  Sex: Male
  Weight: 63.5 kg

DRUGS (2)
  1. GABAPENTIN [Suspect]
     Indication: PAIN
     Dosage: 600 MG 1 TAB HS FOR 5 DAY
     Dates: start: 20111104, end: 20111109
  2. HYDROCODONE [Suspect]
     Indication: MUSCULOSKELETAL PAIN
     Dosage: 5 - 500 MG  1 TAB PO Q6 PRN
     Route: 048
     Dates: start: 20111025, end: 20111109

REACTIONS (2)
  - Intentional self-injury [None]
  - Asphyxia [None]
